FAERS Safety Report 12111705 (Version 1)
Quarter: 2016Q1

REPORT INFORMATION
  Report Type: Spontaneous
  Country: US (occurrence: US)
  Receive Date: 20160224
  Receipt Date: 20160224
  Transmission Date: 20160526
  Serious: No
  Sender: FDA-Public Use
  Company Number: US-LUNDBECK-DKLU2009235

PATIENT
  Sex: Male

DRUGS (2)
  1. UNSPECIFIED STUDY DRUG [Suspect]
     Active Substance: UNSPECIFIED INGREDIENT
     Indication: STATUS EPILEPTICUS
     Route: 065
     Dates: start: 20160117
  2. ONFI [Suspect]
     Active Substance: CLOBAZAM
     Indication: STATUS EPILEPTICUS
     Route: 048
     Dates: start: 20160118, end: 20160120

REACTIONS (1)
  - Rash [Not Recovered/Not Resolved]

NARRATIVE: CASE EVENT DATE: 20160120
